FAERS Safety Report 5016163-3 (Version None)
Quarter: 2006Q2

REPORT INFORMATION
  Report Type: 
  Country: None (occurrence: None)
  Receive Date: 20060601
  Receipt Date: 20060424
  Transmission Date: 20061013
  Serious: Yes (Hospitalization)
  Sender: FDA-Public Use
  Company Number: JP-MERCK-0604USA04076

PATIENT
  Age: 53 Year
  Sex: Female
  Weight: 55 kg

DRUGS (13)
  1. SINGULAIR [Suspect]
     Indication: ASTHMA
     Route: 048
     Dates: start: 20060220, end: 20060419
  2. FLUTIDE [Concomitant]
     Indication: ASTHMA
     Route: 055
     Dates: start: 20060213, end: 20060323
  3. FLUTIDE [Concomitant]
     Route: 055
     Dates: start: 20060224
  4. UNIPHYL [Concomitant]
     Indication: ASTHMA
     Route: 048
     Dates: start: 20060403
  5. UNIPHYL [Concomitant]
     Route: 048
     Dates: start: 20060320, end: 20060402
  6. UNIPHYL [Concomitant]
     Route: 048
     Dates: start: 20060213, end: 20060319
  7. HOKUNALIN [Concomitant]
     Indication: ASTHMA
     Route: 061
     Dates: start: 20060220, end: 20060226
  8. PREDONINE [Concomitant]
     Indication: ASTHMA
     Route: 048
     Dates: start: 20060224, end: 20060225
  9. PREDONINE [Concomitant]
     Route: 048
     Dates: start: 20060226, end: 20060226
  10. MUCODYNE [Concomitant]
     Route: 048
     Dates: start: 20060224, end: 20060302
  11. BROCIN [Concomitant]
     Route: 048
     Dates: start: 20060224, end: 20060302
  12. [THERAPY UNSPECIFIED] [Concomitant]
     Route: 048
     Dates: start: 20060224, end: 20060302
  13. TAKEPRON [Concomitant]
     Route: 048
     Dates: start: 20060224, end: 20060305

REACTIONS (4)
  - ALLERGIC GRANULOMATOUS ANGIITIS [None]
  - CONJUNCTIVAL HAEMORRHAGE [None]
  - MYALGIA [None]
  - NAIL BED BLEEDING [None]
